FAERS Safety Report 17403403 (Version 2)
Quarter: 2020Q2

REPORT INFORMATION
  Report Type: Spontaneous
  Country: US (occurrence: US)
  Receive Date: 20200211
  Receipt Date: 20200423
  Transmission Date: 20200713
  Serious: Yes (Death, Other)
  Sender: FDA-Public Use
  Company Number: US-ASTRAZENECA-2020SE20086

PATIENT
  Age: 224 Day
  Sex: Female

DRUGS (9)
  1. SYNAGIS [Suspect]
     Active Substance: PALIVIZUMAB
     Indication: HEART DISEASE CONGENITAL
     Dosage: 89.0MG UNKNOWN
     Route: 030
     Dates: start: 20200109
  2. SYNAGIS [Suspect]
     Active Substance: PALIVIZUMAB
     Indication: HEART DISEASE CONGENITAL
     Route: 030
     Dates: start: 20191112, end: 20200112
  3. LASIX [Concomitant]
     Active Substance: FUROSEMIDE
     Indication: HEART DISEASE CONGENITAL
     Dosage: BABY ASA 0.25 TABLET
     Route: 048
     Dates: start: 201907
  4. PEDIATRIC MULTIVITAMIN WITH IRON [Concomitant]
     Route: 048
  5. SYNAGIS [Suspect]
     Active Substance: PALIVIZUMAB
     Indication: RESPIRATORY SYNCYTIAL VIRUS INFECTION
     Dosage: 89.0MG UNKNOWN
     Route: 030
     Dates: start: 20200109
  6. SPIRONOLACTONE. [Concomitant]
     Active Substance: SPIRONOLACTONE
     Indication: HEART DISEASE CONGENITAL
     Dosage: STRENGTH-25 MG/5 ML4MG/G DAILY
     Dates: start: 201907
  7. ASPIRIN. [Concomitant]
     Active Substance: ASPIRIN
     Route: 048
  8. SYNAGIS [Suspect]
     Active Substance: PALIVIZUMAB
     Indication: RESPIRATORY SYNCYTIAL VIRUS INFECTION
     Route: 030
     Dates: start: 20191112, end: 20200112
  9. CAPTOPRIL. [Concomitant]
     Active Substance: CAPTOPRIL
     Indication: HEART DISEASE CONGENITAL
     Route: 048
     Dates: start: 201907

REACTIONS (6)
  - Cyanosis [Unknown]
  - Apnoea [Unknown]
  - Hypoxia [Unknown]
  - Malaise [Unknown]
  - Vomiting [Unknown]
  - Cardio-respiratory arrest [Fatal]

NARRATIVE: CASE EVENT DATE: 20200202
